FAERS Safety Report 4961489-2 (Version None)
Quarter: 2006Q1

REPORT INFORMATION
  Report Type: 
  Country: None (occurrence: None)
  Receive Date: 20060329
  Receipt Date: 20060317
  Transmission Date: 20060701
  Serious: Yes (Hospitalization)
  Sender: FDA-Public Use
  Company Number: 2006-DE-01448GD

PATIENT
  Age: 42 Year
  Sex: Male

DRUGS (4)
  1. ACETAMINOPHEN W/ CODEINE [Suspect]
     Indication: UPPER RESPIRATORY TRACT INFECTION
     Dosage: AN ACETAMINOPHEN PLUS CODEINE (500/30 MG) TABLET (SEE TEXT), PO
     Route: 048
  2. METAMIZOL [Suspect]
     Dosage: IV
     Route: 042
  3. AMOXICILLIN PLUS CLAVULANIC ACID (AMOXI-CLAVULANICO) [Suspect]
     Indication: UPPER RESPIRATORY TRACT INFECTION
     Dosage: AN AMOXICILLIN PLUS CLAVULANIC ACID (500/125 MG) PILL (SEE TEXT); PO
     Route: 048
  4. PANTOPRAZOL (PANTOPRAZOLE) [Suspect]
     Dosage: IV
     Route: 042

REACTIONS (9)
  - ALANINE AMINOTRANSFERASE INCREASED [None]
  - ANGIONEUROTIC OEDEMA [None]
  - ASPARTATE AMINOTRANSFERASE INCREASED [None]
  - BLOOD ALKALINE PHOSPHATASE INCREASED [None]
  - BLOOD BILIRUBIN INCREASED [None]
  - GAMMA-GLUTAMYLTRANSFERASE INCREASED [None]
  - PANCREATITIS [None]
  - RASH MACULO-PAPULAR [None]
  - RASH PRURITIC [None]
